FAERS Safety Report 7334117 (Version 2)
Quarter: 2014Q1

REPORT INFORMATION
  Report Type: Spontaneous
  Country: US (occurrence: None)
  Receive Date: 20100226
  Receipt Date: 20140228
  Transmission Date: 20141002
  Serious: Yes (Other)
  Sender: FDA-Public Use
  Company Number: 285567

PATIENT
  Age: 50 Year
  Sex: Male
  Weight: 123.8 kg

DRUGS (9)
  1. PRANDIN [Suspect]
     Indication: PRODUCT USED FOR UNKNOWN INDICATION
     Dosage: ORAL
     Route: 048
     Dates: end: 20070420
  2. BYETTA [Suspect]
     Indication: PRODUCT USED FOR UNKNOWN INDICATION
     Dosage: 10 MCG
     Dates: start: 2006
  3. PRECOSE [Concomitant]
  4. PRAVACHOL [Concomitant]
  5. ASA (ACETYLSALICYLIC ACID) [Concomitant]
  6. COZAAR [Concomitant]
  7. METFORMIN HYDROCHLORIDE [Concomitant]
  8. CINNAMON (CINNAMOMUM VERUM) [Concomitant]
  9. MULTI-VITAMIN [Concomitant]

REACTIONS (3)
  - Pancreatitis [None]
  - Weight decreased [None]
  - Blood glucose increased [None]
